FAERS Safety Report 25817345 (Version 2)
Quarter: 2025Q4

REPORT INFORMATION
  Report Type: Spontaneous
  Country: BR (occurrence: BR)
  Receive Date: 20250918
  Receipt Date: 20251001
  Transmission Date: 20260118
  Serious: Yes (Death, Hospitalization, Other)
  Sender: NOVO NORDISK
  Company Number: BR-NOVOPROD-1523923

PATIENT
  Sex: Female

DRUGS (1)
  1. SEMAGLUTIDE [Suspect]
     Active Substance: SEMAGLUTIDE
     Indication: Product used for unknown indication
     Dosage: UNK

REACTIONS (2)
  - Oncologic complication [Fatal]
  - Pancreatic neoplasm [Unknown]

NARRATIVE: CASE EVENT DATE: 20250801
